FAERS Safety Report 15568973 (Version 1)
Quarter: 2018Q4

REPORT INFORMATION
  Report Type: Report from Study
  Country: ES (occurrence: ES)
  Receive Date: 20181031
  Receipt Date: 20181031
  Transmission Date: 20190205
  Serious: Yes (Hospitalization)
  Sender: FDA-Public Use
  Company Number: ES-TEVA-2018-ES-961579

PATIENT
  Age: 94 Year
  Sex: Male

DRUGS (6)
  1. ADIRO 100 MG COMPRIMIDOS GASTRORRESISTENTES EFG , 30 COMPRIMIDOS [Concomitant]
     Active Substance: ASPIRIN
     Route: 048
     Dates: start: 20170829
  2. QUETIAPINA (1136A) [Interacting]
     Active Substance: QUETIAPINE
     Dosage: 150 MILLIGRAM DAILY; 50MG-0-100MG
     Route: 048
     Dates: start: 20170829, end: 20171026
  3. DORMICUM 7,5 MG COMPRIMIDOS RECUBIERTOS CON PELICULA. , 20 COMPRIMIDOS [Concomitant]
     Route: 048
     Dates: start: 20170829
  4. SINEMET 25 MG/250 MG COMPRIMIDOS, 60 COMPRIMIDOS [Concomitant]
     Route: 048
     Dates: start: 20130101
  5. AMERIDE 5 MG/50 MG COMPRIMIDOS, 60 COMPRIMIDOS [Interacting]
     Active Substance: AMILORIDE HYDROCHLORIDE\HYDROCHLOROTHIAZIDE
     Dosage: 1 DOSAGE FORMS DAILY;
     Route: 048
     Dates: start: 20170829, end: 20171026
  6. PAROXETINA (2586A) [Suspect]
     Active Substance: PAROXETINE
     Dosage: 20 MG DIA
     Route: 048
     Dates: start: 20170829

REACTIONS (2)
  - Inappropriate antidiuretic hormone secretion [Recovered/Resolved]
  - Drug interaction [Unknown]

NARRATIVE: CASE EVENT DATE: 20171026
